FAERS Safety Report 8836674 (Version 1)
Quarter: 2012Q4

REPORT INFORMATION
  Report Type: Spontaneous
  Country: GB (occurrence: None)
  Receive Date: 20121010
  Receipt Date: 20121010
  Transmission Date: 20130627
  Serious: Yes (Disabling)
  Sender: FDA-Public Use
  Company Number: GER/UKI/12/0026110

PATIENT
  Sex: Female
  Weight: 75 kg

DRUGS (4)
  1. LETROZOLE [Suspect]
     Indication: DRUG USE FOR UNKNOWN INDICATION
     Dates: start: 20120607
  2. AVEENO (AVENA SATIVA FLUID EXTRACT) [Concomitant]
  3. ITRACONAZOLE (ITRACONAZOLE) [Concomitant]
  4. OLMESARTAN MEDOXOMIL (OLMESARTAN MEDOXOMIL) [Concomitant]

REACTIONS (2)
  - Urticaria [None]
  - Product substitution issue [None]
